FAERS Safety Report 6424839-6 (Version None)
Quarter: 2009Q4

REPORT INFORMATION
  Report Type: 
  Country: None (occurrence: None)
  Receive Date: 20091103
  Receipt Date: 20091020
  Transmission Date: 20100525
  Serious: Yes (Other)
  Sender: FDA-Public Use
  Company Number: PHHY2009BR45781

PATIENT
  Sex: Female
  Weight: 68 kg

DRUGS (8)
  1. TEGRETOL [Suspect]
  2. TOFRANIL [Suspect]
  3. ROHYPNOL [Concomitant]
  4. ZOLOFT [Concomitant]
  5. DEPAKOTE [Concomitant]
  6. SERTRALINE HCL [Concomitant]
     Dosage: 50 MG
  7. CARBOLITIUM [Concomitant]
     Dosage: 300 MG
  8. CARBOLITIUM [Concomitant]
     Dosage: CR (450 MG)

REACTIONS (8)
  - ABDOMINAL DISCOMFORT [None]
  - FIBROMYALGIA [None]
  - NAUSEA [None]
  - PAIN [None]
  - PANCREATIC ENZYMES ABNORMAL [None]
  - SJOGREN'S SYNDROME [None]
  - THYROIDITIS [None]
  - VOMITING [None]
